FAERS Safety Report 8050836-3 (Version None)
Quarter: 2012Q1

REPORT INFORMATION
  Report Type: 
  Country: None (occurrence: None)
  Receive Date: 20120117
  Receipt Date: 20120106
  Transmission Date: 20120608
  Serious: Yes (Other)
  Sender: FDA-Public Use
  Company Number: PHHY2012TR001899

PATIENT
  Age: 51 Year
  Sex: Male

DRUGS (3)
  1. CHEMOTHERAPEUTICS [Concomitant]
  2. RADIOTHERAPY [Concomitant]
  3. ZOMETA [Suspect]
     Route: 042

REACTIONS (1)
  - PERIODONTAL DISEASE [None]
